FAERS Safety Report 11212709 (Version 2)
Quarter: 2015Q3

REPORT INFORMATION
  Report Type: Spontaneous
  Country: US (occurrence: US)
  Receive Date: 20150623
  Receipt Date: 20150803
  Transmission Date: 20151125
  Serious: No
  Sender: FDA-Public Use
  Company Number: US-009507513-1506USA011409

PATIENT
  Sex: Male

DRUGS (3)
  1. AMBIEN [Concomitant]
     Active Substance: ZOLPIDEM TARTRATE
     Dosage: USED FOR YEARS
  2. SONATA [Concomitant]
     Active Substance: ZALEPLON
  3. BELSOMRA [Suspect]
     Active Substance: SUVOREXANT
     Indication: INSOMNIA
     Dosage: 10 MG, TOOK ONLY ONE DOSE
     Route: 048

REACTIONS (2)
  - Abnormal dreams [Unknown]
  - Hangover [Unknown]
